FAERS Safety Report 7465967-6 (Version None)
Quarter: 2011Q2

REPORT INFORMATION
  Report Type: 
  Country: None (occurrence: None)
  Receive Date: 20110509
  Receipt Date: 20100524
  Transmission Date: 20111010
  Serious: No
  Sender: FDA-Public Use
  Company Number: US-ALEXION-A201000598

PATIENT
  Sex: Male

DRUGS (3)
  1. SOLIRIS [Suspect]
     Dosage: 900 MG, Q2W
     Route: 042
     Dates: start: 20090610
  2. FINASTERIDE [Concomitant]
     Indication: PROSTATOMEGALY
     Dosage: UNK
     Route: 048
  3. SOLIRIS [Suspect]
     Indication: PAROXYSMAL NOCTURNAL HAEMOGLOBINURIA
     Dosage: 600 MG, UNK
     Route: 042
     Dates: start: 20090422

REACTIONS (1)
  - INFLUENZA LIKE ILLNESS [None]
